FAERS Safety Report 14665521 (Version 2)
Quarter: 2018Q2

REPORT INFORMATION
  Report Type: Spontaneous
  Country: CA (occurrence: CA)
  Receive Date: 20180321
  Receipt Date: 20180427
  Transmission Date: 20180711
  Serious: Yes (Death)
  Sender: FDA-Public Use
  Company Number: CA-IMPAX LABORATORIES, INC-2018-IPXL-00850

PATIENT
  Age: 59 Year
  Sex: Male

DRUGS (15)
  1. THALIDOMIDE [Suspect]
     Active Substance: THALIDOMIDE
     Indication: PLASMA CELL MYELOMA
     Dosage: UNK
     Route: 065
  2. IXAZOMIB [Suspect]
     Active Substance: IXAZOMIB
     Indication: PLASMA CELL MYELOMA
     Dosage: 2.3 MG, WEEKLY
     Route: 048
  3. ACYCLOVIR. [Concomitant]
     Active Substance: ACYCLOVIR
     Indication: PRODUCT USED FOR UNKNOWN INDICATION
     Dosage: 400 MG, DAILY
     Route: 048
  4. DEXAMETHASONE. [Suspect]
     Active Substance: DEXAMETHASONE
     Dosage: 20 MG, WEEKLY
     Route: 048
  5. MIRTAZAPINE ODT [Suspect]
     Active Substance: MIRTAZAPINE
     Indication: PRODUCT USE IN UNAPPROVED INDICATION
  6. BORTEZOMIB [Suspect]
     Active Substance: BORTEZOMIB
     Indication: PREOPERATIVE CARE
     Dosage: UNK
     Route: 065
  7. CYCLOPHOSPHAMIDE. [Suspect]
     Active Substance: CYCLOPHOSPHAMIDE
     Indication: PLASMA CELL MYELOMA
     Dosage: LOW DOSE, UNK
     Route: 065
  8. DEXAMETHASONE. [Suspect]
     Active Substance: DEXAMETHASONE
     Indication: LIGHT CHAIN DISEASE
     Dosage: UNK
     Route: 065
  9. FUROSEMIDE. [Concomitant]
     Active Substance: FUROSEMIDE
     Indication: PRODUCT USED FOR UNKNOWN INDICATION
     Dosage: 40 MG, DAILY
     Route: 048
  10. LENALIDOMIDE [Suspect]
     Active Substance: LENALIDOMIDE
     Indication: LIGHT CHAIN DISEASE
     Dosage: UNK
     Route: 065
  11. MIRTAZAPINE ODT [Suspect]
     Active Substance: MIRTAZAPINE
     Indication: PROGRESSIVE MULTIFOCAL LEUKOENCEPHALOPATHY
     Dosage: 15 MG, DAILY
     Route: 048
  12. ALLOPURINOL. [Concomitant]
     Active Substance: ALLOPURINOL
     Indication: PRODUCT USED FOR UNKNOWN INDICATION
     Dosage: 200 MG, DAILY
     Route: 048
  13. WARFARIN [Concomitant]
     Active Substance: WARFARIN
     Indication: PRODUCT USED FOR UNKNOWN INDICATION
     Dosage: 3 MG, DAILY
     Route: 048
  14. BISOPROLOL [Concomitant]
     Active Substance: BISOPROLOL
     Indication: PRODUCT USED FOR UNKNOWN INDICATION
     Dosage: 5 MG, DAILY
     Route: 048
  15. DEXAMETHASONE. [Suspect]
     Active Substance: DEXAMETHASONE
     Indication: PREOPERATIVE CARE
     Dosage: UNK
     Route: 065

REACTIONS (2)
  - Drug ineffective for unapproved indication [Unknown]
  - Respiratory failure [Fatal]
